FAERS Safety Report 4783757-X (Version None)
Quarter: 2005Q3

REPORT INFORMATION
  Report Type: 
  Country: None (occurrence: None)
  Receive Date: 20050928
  Receipt Date: 20050915
  Transmission Date: 20060218
  Serious: Yes (Other)
  Sender: FDA-Public Use
  Company Number: 2005130572

PATIENT
  Age: 46 Year
  Sex: Female

DRUGS (3)
  1. DIFLUCAN [Suspect]
     Indication: VAGINAL CANDIDIASIS
     Dosage: 150  MG (INTERVAL:INTERMITTEND) ORAL FOR YEARS
     Route: 048
  2. CIPROFLOXACIN [Suspect]
     Indication: ILL-DEFINED DISORDER
  3. MIGRAINE MEDICATION (ALL OTHER THERAPEUTIC PRODUCTS) [Concomitant]

REACTIONS (4)
  - FLUSHING [None]
  - SUBCUTANEOUS NODULE [None]
  - TYPE III IMMUNE COMPLEX MEDIATED REACTION [None]
  - VASCULITIS [None]
